FAERS Safety Report 26117781 (Version 2)
Quarter: 2025Q4

REPORT INFORMATION
  Report Type: Spontaneous
  Country: AU (occurrence: AU)
  Receive Date: 20251203
  Receipt Date: 20251231
  Transmission Date: 20260118
  Serious: Yes (Hospitalization)
  Sender: TAKEDA
  Company Number: AU-TAKEDA-2025TUS107959

PATIENT
  Sex: Male

DRUGS (3)
  1. LIVTENCITY [Suspect]
     Active Substance: MARIBAVIR
     Indication: Cytomegalovirus infection reactivation
     Dosage: 400 MILLIGRAM, BID
  2. LIVTENCITY [Suspect]
     Active Substance: MARIBAVIR
     Indication: Allogenic stem cell transplantation
     Dosage: UNK
  3. LIVTENCITY [Suspect]
     Active Substance: MARIBAVIR
     Dosage: 800 MILLIGRAM, QD

REACTIONS (1)
  - Gastrointestinal inflammation [Unknown]
